FAERS Safety Report 23382880 (Version 1)
Quarter: 2024Q1

REPORT INFORMATION
  Report Type: Spontaneous
  Country: CN (occurrence: CN)
  Receive Date: 20240109
  Receipt Date: 20240109
  Transmission Date: 20240409
  Serious: Yes (Other)
  Sender: FDA-Public Use
  Company Number: CN-PFIZER INC-PV202400001421

PATIENT
  Age: 102 Year
  Sex: Male
  Weight: 60 kg

DRUGS (1)
  1. ZYVOX [Suspect]
     Active Substance: LINEZOLID
     Indication: Symptomatic treatment
     Dosage: 300 MG, 1X/DAY
     Route: 041
     Dates: start: 20231201, end: 20231209

REACTIONS (4)
  - Platelet count decreased [Recovering/Resolving]
  - Large intestinal ulcer haemorrhage [Unknown]
  - Coagulation test abnormal [Unknown]
  - Off label use [Unknown]

NARRATIVE: CASE EVENT DATE: 20231201
